FAERS Safety Report 7411307-8 (Version None)
Quarter: 2011Q2

REPORT INFORMATION
  Report Type: 
  Country: None (occurrence: None)
  Receive Date: 20110413
  Receipt Date: 20100629
  Transmission Date: 20111010
  Serious: Yes (Life-Threatening, Hospitalization)
  Sender: FDA-Public Use
  Company Number: US-BRISTOL-MYERS SQUIBB COMPANY-15136831

PATIENT
  Age: 81 Year
  Sex: Male

DRUGS (4)
  1. DIPHENHYDRAMINE [Concomitant]
     Indication: PREMEDICATION
  2. DEXAMETHASONE [Concomitant]
     Indication: PREMEDICATION
  3. APAP TAB [Concomitant]
     Indication: PREMEDICATION
  4. ERBITUX [Suspect]
     Dosage: AT A DOSE OF 400 MG/M2

REACTIONS (2)
  - INFUSION RELATED REACTION [None]
  - RESPIRATORY ARREST [None]
